FAERS Safety Report 18225381 (Version 3)
Quarter: 2020Q3

REPORT INFORMATION
  Report Type: Report from Study
  Country: IT (occurrence: IT)
  Receive Date: 20200903
  Receipt Date: 20200909
  Transmission Date: 20201103
  Serious: Yes (Other)
  Sender: FDA-Public Use
  Company Number: IT-AUROBINDO-AUR-APL-2020-045979

PATIENT
  Age: 25 Year
  Sex: Male

DRUGS (1)
  1. IMATINIB. [Suspect]
     Active Substance: IMATINIB MESYLATE
     Indication: CHRONIC MYELOID LEUKAEMIA
     Dosage: 400 MILLIGRAM, ONCE A DAY
     Route: 065

REACTIONS (3)
  - Optic neuritis [Recovered/Resolved]
  - Iatrogenic injury [Unknown]
  - Blindness [Recovered/Resolved]
